FAERS Safety Report 5167872-7 (Version None)
Quarter: 2006Q4

REPORT INFORMATION
  Report Type: 
  Country: None (occurrence: None)
  Receive Date: 20061206
  Receipt Date: 20061206
  Transmission Date: 20070319
  Serious: Yes (Hospitalization)
  Sender: FDA-Public Use
  Company Number: None

PATIENT
  Age: 78 Year
  Sex: Male
  Weight: 95.2554 kg

DRUGS (3)
  1. PROMETHAZINE [Suspect]
     Indication: DIZZINESS
     Dosage: 12.5 MG   (1 DOSE)
     Dates: start: 20060807
  2. PROMETHAZINE [Suspect]
     Indication: NAUSEA
     Dosage: 12.5 MG   (1 DOSE)
     Dates: start: 20060807
  3. PROMETHAZINE [Suspect]
     Indication: VOMITING
     Dosage: 12.5 MG   (1 DOSE)
     Dates: start: 20060807

REACTIONS (1)
  - SOMNOLENCE [None]
